FAERS Safety Report 10518586 (Version 2)
Quarter: 2014Q4

REPORT INFORMATION
  Report Type: Report from Study
  Country: US (occurrence: GB)
  Receive Date: 20141015
  Receipt Date: 20141015
  Transmission Date: 20150528
  Serious: Yes (Other)
  Sender: FDA-Public Use
  Company Number: GB-LEO PHARMA-222984

PATIENT
  Age: 68 Year
  Sex: Female

DRUGS (4)
  1. CLARITIN [Concomitant]
     Active Substance: LORATADINE
     Indication: APPLICATION SITE SWELLING
     Route: 048
     Dates: start: 20130803
  2. FLUCLOXACILLIN [Concomitant]
     Active Substance: FLUCLOXACILLIN
     Indication: APPLICATION SITE INFECTION
     Route: 048
     Dates: start: 20130803
  3. IBUPROFEN. [Concomitant]
     Active Substance: IBUPROFEN
     Indication: APPLICATION SITE PAIN
     Route: 048
     Dates: start: 20130803
  4. PICATO [Suspect]
     Active Substance: INGENOL MEBUTATE
     Indication: ACTINIC KERATOSIS
     Route: 061
     Dates: start: 20130801

REACTIONS (11)
  - Application site swelling [Unknown]
  - Incorrect drug administration duration [Unknown]
  - Skin tightness [Unknown]
  - Application site erythema [Unknown]
  - Visual impairment [Unknown]
  - Drug administered at inappropriate site [Unknown]
  - Application site pain [Unknown]
  - Application site vesicles [Unknown]
  - Application site scab [Unknown]
  - Application site infection [Unknown]
  - Eye swelling [Unknown]

NARRATIVE: CASE EVENT DATE: 20130801
